FAERS Safety Report 9819802 (Version 2)
Quarter: 2014Q1

REPORT INFORMATION
  Report Type: Report from Study
  Country: CA (occurrence: CA)
  Receive Date: 20140116
  Receipt Date: 20140116
  Transmission Date: 20141002
  Serious: Yes (Hospitalization, Other)
  Sender: FDA-Public Use
  Company Number: CA-BRISTOL-MYERS SQUIBB COMPANY-17332396

PATIENT
  Age: 56 Year
  Sex: Female
  Weight: 80 kg

DRUGS (7)
  1. ORENCIA [Suspect]
     Indication: RHEUMATOID ARTHRITIS
     Route: 042
     Dates: start: 20070927, end: 20130325
  2. ACETYLSALICYLIC ACID [Suspect]
  3. METHOTREXATE [Concomitant]
  4. LOSEC [Concomitant]
  5. VERAPAMIL [Concomitant]
  6. ALDACTONE [Concomitant]
  7. FUROSEMIDE [Concomitant]

REACTIONS (10)
  - Contusion [Not Recovered/Not Resolved]
  - Bone pain [Not Recovered/Not Resolved]
  - Limb injury [Unknown]
  - Wound haemorrhage [Unknown]
  - Fall [Unknown]
  - Ankle fracture [Not Recovered/Not Resolved]
  - Oropharyngeal pain [Not Recovered/Not Resolved]
  - Productive cough [Not Recovered/Not Resolved]
  - Pain [Not Recovered/Not Resolved]
  - Drug ineffective [Unknown]
